FAERS Safety Report 5628753-5 (Version None)
Quarter: 2008Q1

REPORT INFORMATION
  Report Type: 
  Country: None (occurrence: None)
  Receive Date: 20080215
  Receipt Date: 20080215
  Transmission Date: 20080703
  Serious: No
  Sender: FDA-Public Use
  Company Number: None

PATIENT
  Age: 51 Year
  Sex: Male
  Weight: 106.1417 kg

DRUGS (1)
  1. NEUPRO [Suspect]
     Indication: PARKINSON'S DISEASE
     Dosage: 6MG QD TRANSDERMAL
     Route: 062
     Dates: start: 20070821, end: 20080213

REACTIONS (2)
  - PITTING OEDEMA [None]
  - WHEEZING [None]
